FAERS Safety Report 4808854-1 (Version None)
Quarter: 2005Q4

REPORT INFORMATION
  Report Type: 
  Country: None (occurrence: None)
  Receive Date: 20051021
  Receipt Date: 20021010
  Transmission Date: 20060501
  Serious: No
  Sender: FDA-Public Use
  Company Number: DE_021009846

PATIENT
  Age: 57 Year
  Sex: Male

DRUGS (2)
  1. ZYPREXA [Suspect]
     Indication: SCHIZOAFFECTIVE DISORDER
     Dosage: 10 MG/1 DAY
     Dates: start: 20020601, end: 20021001
  2. NIFEDIPINE [Concomitant]

REACTIONS (3)
  - LEUKOPENIA [None]
  - LYMPHOCYTOSIS [None]
  - SHIFT TO THE LEFT [None]
